FAERS Safety Report 8182402-3 (Version None)
Quarter: 2012Q1

REPORT INFORMATION
  Report Type: 
  Country: None (occurrence: None)
  Receive Date: 20120304
  Receipt Date: 20120223
  Transmission Date: 20120608
  Serious: Yes (Other)
  Sender: FDA-Public Use
  Company Number: JP-VERTEX PHARMACEUTICALS INC.-AE-2012-002822

PATIENT
  Age: 59 Year
  Sex: Male

DRUGS (3)
  1. PEGINTERFERON ALFA-2B [Concomitant]
     Route: 058
     Dates: start: 20120214
  2. REBETOL [Concomitant]
     Route: 048
     Dates: start: 20120214
  3. TELAVIC (TELAPREVIR) [Suspect]
     Route: 048
     Dates: start: 20120214, end: 20120220

REACTIONS (1)
  - RENAL FAILURE ACUTE [None]
